FAERS Safety Report 8361812-5 (Version None)
Quarter: 2012Q2

REPORT INFORMATION
  Report Type: 
  Country: None (occurrence: None)
  Receive Date: 20120515
  Receipt Date: 20120510
  Transmission Date: 20120825
  Serious: Yes (Other)
  Sender: FDA-Public Use
  Company Number: GR-GLAXOSMITHKLINE-B0791149A

PATIENT
  Age: 78 Year
  Sex: Female

DRUGS (2)
  1. ANAESTHETIC [Concomitant]
  2. ARIXTRA [Suspect]
     Indication: PRODUCT USED FOR UNKNOWN INDICATION
     Route: 065

REACTIONS (2)
  - SUBDURAL HAEMATOMA [None]
  - MONOPARESIS [None]
